FAERS Safety Report 12637069 (Version 1)
Quarter: 2016Q3

REPORT INFORMATION
  Report Type: Spontaneous
  Country: US (occurrence: US)
  Receive Date: 20160809
  Receipt Date: 20160809
  Transmission Date: 20161109
  Serious: No
  Sender: FDA-Public Use
  Company Number: US-BEH-2015052165

PATIENT
  Sex: Female
  Weight: 78 kg

DRUGS (29)
  1. ABILIFY [Concomitant]
     Active Substance: ARIPIPRAZOLE
  2. HEPARIN 100UN/ML [Concomitant]
     Indication: ANAPHYLACTIC REACTION
  3. DUCLOXETINE [Concomitant]
  4. RESTORIL [Concomitant]
     Active Substance: TEMAZEPAM
  5. VESICARE [Concomitant]
     Active Substance: SOLIFENACIN SUCCINATE
  6. METHOTREXATE. [Concomitant]
     Active Substance: METHOTREXATE
  7. PRIVIGEN [Suspect]
     Active Substance: HUMAN IMMUNOGLOBULIN G
     Dosage: 5 GM VIALS
     Route: 042
  8. LIDOCAINE / PROCAINE 2.5 % [Concomitant]
  9. COREG 25 MG [Concomitant]
  10. TRAMADOL. [Concomitant]
     Active Substance: TRAMADOL
  11. CYTOMEL [Concomitant]
     Active Substance: LIOTHYRONINE SODIUM
  12. DIPHENHYDRAMINE 25 MG [Concomitant]
  13. SYNTHROID [Concomitant]
     Active Substance: LEVOTHYROXINE SODIUM
  14. DICYCLOMINE [Concomitant]
     Active Substance: DICYCLOMINE HYDROCHLORIDE
  15. LMX [Concomitant]
     Active Substance: LIDOCAINE
  16. SODIUM CHLORIDE 0.9% [Concomitant]
     Active Substance: SODIUM CHLORIDE
  17. EPIPEN 0.3 MG [Concomitant]
  18. FOLIC ACID. [Concomitant]
     Active Substance: FOLIC ACID
  19. GABAPENTIN. [Concomitant]
     Active Substance: GABAPENTIN
  20. DIPHENHYDRAMINE HYDROCHLORIDE 50 MG/ML [Concomitant]
     Indication: ANAPHYLACTIC REACTION
  21. NASONEX [Concomitant]
     Active Substance: MOMETASONE FUROATE
  22. TIZANIDINE. [Concomitant]
     Active Substance: TIZANIDINE
  23. OMEGA 3 [Concomitant]
     Active Substance: OMEGA-3 FATTY ACIDS
  24. PRIVIGEN [Suspect]
     Active Substance: HUMAN IMMUNOGLOBULIN G
     Indication: PRODUCT USED FOR UNKNOWN INDICATION
     Route: 042
  25. ACETAMINOPHEN 325 MG [Concomitant]
     Active Substance: ACETAMINOPHEN
  26. PROTONIX 40 MG [Concomitant]
  27. MONTELUKAST 10 MG [Concomitant]
     Active Substance: MONTELUKAST SODIUM
  28. ZYRTEC [Concomitant]
     Active Substance: CETIRIZINE HYDROCHLORIDE
  29. POTASSIUM [Concomitant]
     Active Substance: POTASSIUM

REACTIONS (1)
  - Urinary tract infection [Unknown]
